FAERS Safety Report 6749802-7 (Version None)
Quarter: 2010Q2

REPORT INFORMATION
  Report Type: 
  Country: None (occurrence: None)
  Receive Date: 20100601
  Receipt Date: 20100525
  Transmission Date: 20101027
  Serious: Yes (Hospitalization)
  Sender: FDA-Public Use
  Company Number: FR-MERCK-1005FRA00093

PATIENT
  Age: 84 Year
  Sex: Male

DRUGS (9)
  1. COSOPT [Suspect]
     Route: 065
  2. ALLOPURINOL [Concomitant]
     Route: 065
  3. ASPIRIN LYSINE [Concomitant]
     Route: 048
  4. GLIMEPIRIDE [Concomitant]
     Route: 065
  5. TELMISARTAN [Concomitant]
     Route: 065
  6. VERAPAMIL [Suspect]
     Route: 065
     Dates: end: 20091019
  7. TAMSULOSIN HYDROCHLORIDE [Concomitant]
     Route: 065
  8. FUROSEMIDE [Concomitant]
     Route: 065
  9. BISOPROLOL FUMARATE [Suspect]
     Route: 048
     Dates: start: 20091018, end: 20091019

REACTIONS (4)
  - ASTHENIA [None]
  - BRADYCARDIA [None]
  - CONFUSIONAL STATE [None]
  - DRUG INTERACTION [None]
